FAERS Safety Report 9515258 (Version 1)
Quarter: 2013Q1

REPORT INFORMATION
  Report Type: Spontaneous
  Country: US (occurrence: None)
  Receive Date: 20130305
  Receipt Date: 20130305
  Transmission Date: 20140127
  Serious: Yes (Hospitalization)
  Sender: FDA-Public Use
  Company Number: 163-21880-12112691

PATIENT
  Age: 68 Year
  Sex: Female
  Weight: 65.77 kg

DRUGS (14)
  1. REVLIMID [Suspect]
     Indication: MYELODYSPLASTIC SYNDROME
     Dosage: 5 MG, 1 IN 2 D, PO
     Route: 048
     Dates: start: 20111103
  2. ASPIRIN (ACETYLSALICYLIC ACID) (UNKNOWN) (ACETYLSALICYLIC ACID) [Concomitant]
  3. OSCAL (CALCIUM CARBONATE) (UNKNOWN) [Concomitant]
  4. CENTRUM SILVER (CENTRUM SILVER) (UNKNOWN) [Concomitant]
  5. COREG (CARVEDILOL) (UNKNOWN) [Concomitant]
  6. FOLIC ACID (FOLIC ACID) (UNKNOWN) [Concomitant]
  7. HUMALOG (INSULIN LISPRO) (UNKNOWN) [Concomitant]
  8. LANTUS (INSULIN GLARGINE) (UNKNOWN) [Concomitant]
  9. IRON [Concomitant]
  10. LASIX (FUROSEMIDE) (UNKNOWN) [Concomitant]
  11. LEVOTHYROXINE (LEVOTHROXINE SODIUM) (UNKNOWN)? [Concomitant]
  12. LEXAPRO (ESCITALOPRAM OXALATE) (UNKNOWN) [Concomitant]
  13. NORVASC (AMLODIPINE BESILATE) (UNKNOWN) [Concomitant]
  14. PRAVASTATIN (PRAVASTATIN) (UNKNOWN) [Concomitant]

REACTIONS (1)
  - Pneumonia viral [None]
